FAERS Safety Report 15689709 (Version 1)
Quarter: 2018Q4

REPORT INFORMATION
  Report Type: Report from Study
  Country: IT (occurrence: IT)
  Receive Date: 20181205
  Receipt Date: 20181205
  Transmission Date: 20190205
  Serious: Yes (Hospitalization)
  Sender: FDA-Public Use
  Company Number: IT-TEVA-2018-IT-981442

PATIENT
  Age: 65 Year
  Sex: Male

DRUGS (9)
  1. CONGESCOR [Concomitant]
     Active Substance: BISOPROLOL
  2. DELTACORTENE [Concomitant]
     Active Substance: PREDNISONE
  3. PANTORC [Concomitant]
     Active Substance: PANTOPRAZOLE SODIUM
  4. DUROGESIC [Concomitant]
     Active Substance: FENTANYL
  5. PLASIL [Concomitant]
     Active Substance: METOCLOPRAMIDE HYDROCHLORIDE
  6. TWICE [Concomitant]
  7. ASPIRIN. [Concomitant]
     Active Substance: ASPIRIN
  8. ZYLLT [Concomitant]
     Active Substance: CLOPIDOGREL BISULFATE
  9. CARBOPLATIN. [Suspect]
     Active Substance: CARBOPLATIN
     Indication: HYPOPHARYNGEAL CANCER
     Route: 042

REACTIONS (5)
  - Hyperpyrexia [Recovering/Resolving]
  - Aphthous ulcer [Recovering/Resolving]
  - Asthenia [Recovering/Resolving]
  - Constipation [Recovering/Resolving]
  - Pneumonia [Recovering/Resolving]
